FAERS Safety Report 7018186-1 (Version None)
Quarter: 2010Q3

REPORT INFORMATION
  Report Type: 
  Country: None (occurrence: None)
  Receive Date: 20100928
  Receipt Date: 20100917
  Transmission Date: 20110219
  Serious: Yes (Hospitalization)
  Sender: FDA-Public Use
  Company Number: DE-TEVA-249513ISR

PATIENT
  Age: 12 Year
  Sex: Male
  Weight: 45 kg

DRUGS (1)
  1. AZILECT [Suspect]
     Dosage: 3 TABLETS AT ONCE
     Route: 048
     Dates: start: 20100916, end: 20100916

REACTIONS (1)
  - ACCIDENTAL DRUG INTAKE BY CHILD [None]
